FAERS Safety Report 8187542-0 (Version None)
Quarter: 2012Q1

REPORT INFORMATION
  Report Type: 
  Country: None (occurrence: None)
  Receive Date: 20120306
  Receipt Date: 20120220
  Transmission Date: 20120608
  Serious: Yes (Other)
  Sender: FDA-Public Use
  Company Number: JP-GENZYME-THYM-1003136

PATIENT
  Sex: Female
  Weight: 50 kg

DRUGS (8)
  1. CYCLOSPORINE [Concomitant]
     Indication: APLASTIC ANAEMIA
     Dosage: UNK
     Route: 065
     Dates: start: 20110304
  2. FILGRASTIM [Concomitant]
     Indication: APLASTIC ANAEMIA
     Dosage: UNK
     Route: 065
     Dates: start: 20110324, end: 20110419
  3. THYMOGLOBULIN [Suspect]
     Indication: APLASTIC ANAEMIA
     Dosage: 175 MG, QD
     Route: 042
     Dates: start: 20110314, end: 20110314
  4. THYMOGLOBULIN [Suspect]
     Dosage: 175 MG, QD
     Route: 042
     Dates: start: 20110322, end: 20110325
  5. PLATELETS [Concomitant]
     Dosage: UNK
     Route: 065
     Dates: start: 20110509, end: 20110509
  6. PREDNISOLONE [Concomitant]
     Indication: APLASTIC ANAEMIA
     Dosage: UNK
     Route: 065
     Dates: start: 20110318
  7. PLATELETS [Concomitant]
     Indication: APLASTIC ANAEMIA
     Dosage: UNK
     Route: 065
     Dates: start: 20110305, end: 20110428
  8. HUMAN RED BLOOD CELLS [Concomitant]
     Indication: APLASTIC ANAEMIA
     Dosage: UNK
     Route: 065
     Dates: start: 20110304, end: 20110427

REACTIONS (2)
  - LIVER DISORDER [None]
  - ANAPHYLACTIC REACTION [None]
